FAERS Safety Report 7416308-1 (Version None)
Quarter: 2011Q2

REPORT INFORMATION
  Report Type: 
  Country: None (occurrence: None)
  Receive Date: 20110414
  Receipt Date: 20110407
  Transmission Date: 20111010
  Serious: Yes (Death, Other)
  Sender: FDA-Public Use
  Company Number: FR-ELI_LILLY_AND_COMPANY-FR201104001842

PATIENT
  Sex: Male

DRUGS (17)
  1. CISPLATIN [Concomitant]
     Indication: BRONCHIAL CARCINOMA
     Dosage: 2125 MG, UNK
     Route: 042
     Dates: start: 20101027
  2. VANCOMYCINE [Concomitant]
     Route: 042
  3. TAZOCILLINE [Concomitant]
     Route: 042
  4. TAZOCILLINE [Concomitant]
     Dosage: UNK
     Dates: start: 20101031
  5. BACTRIM [Concomitant]
     Route: 042
  6. ROVAMYCINE [Concomitant]
     Route: 042
  7. MIDAZOLAM [Concomitant]
     Route: 042
  8. HEPARIN [Concomitant]
     Dosage: 25000 IU, 5ML
     Route: 042
     Dates: start: 20101031, end: 20101104
  9. GEMZAR [Suspect]
     Indication: BRONCHIAL CARCINOMA
     Dosage: 128 MG, UNK
     Route: 042
     Dates: start: 20101027
  10. BACTRIM [Concomitant]
     Dosage: UNK
     Dates: start: 20101031
  11. RISORDAN [Concomitant]
     Dosage: UNK
     Route: 042
  12. CIPROFLOXACIN HCL [Concomitant]
     Dosage: UNK
     Route: 042
     Dates: start: 20101031
  13. CORDARONE [Concomitant]
     Dosage: UNK
     Route: 042
     Dates: start: 20101101
  14. TAZOCILLINE [Concomitant]
     Dosage: UNK
     Dates: start: 20101027
  15. ACUPAN [Concomitant]
     Dosage: UNK
     Route: 042
     Dates: start: 20101031
  16. RISORDAN [Concomitant]
     Dosage: UNK
     Dates: start: 20101101
  17. FOLINATE DE CALCIUM AGUETTANT [Concomitant]
     Route: 042

REACTIONS (10)
  - LEUKOPENIA [None]
  - PNEUMONIA [None]
  - DEEP VEIN THROMBOSIS [None]
  - DEATH [None]
  - CORONARY ARTERY DISEASE [None]
  - CORONARY ARTERY STENOSIS [None]
  - ATRIAL FIBRILLATION [None]
  - RESPIRATORY DISTRESS [None]
  - INTERSTITIAL LUNG DISEASE [None]
  - THROMBOCYTOPENIA [None]
